FAERS Safety Report 14843107 (Version 3)
Quarter: 2019Q4

REPORT INFORMATION
  Report Type: Spontaneous
  Country: US (occurrence: US)
  Receive Date: 20180503
  Receipt Date: 20191018
  Transmission Date: 20200122
  Serious: Yes (Other)
  Sender: FDA-Public Use
  Company Number: US-ELI_LILLY_AND_COMPANY-US201804013775

PATIENT
  Sex: Male

DRUGS (4)
  1. VIAGRA [Suspect]
     Active Substance: SILDENAFIL CITRATE
     Indication: ERECTILE DYSFUNCTION
     Dosage: 100MG, THREE TIMES A WEEK
     Route: 065
     Dates: start: 20020308, end: 20020310
  2. CIALIS [Suspect]
     Active Substance: TADALAFIL
     Dosage: 20MG, 3 TIMES A WEEK
     Route: 065
     Dates: start: 20170518, end: 20171111
  3. VIAGRA [Suspect]
     Active Substance: SILDENAFIL CITRATE
     Dosage: 100MG, THREE TIMES A WEEK
     Route: 065
     Dates: start: 20090916, end: 20091016
  4. CIALIS [Suspect]
     Active Substance: TADALAFIL
     Indication: ERECTILE DYSFUNCTION
     Dosage: 5MG, 3 TIMES A WEEK
     Route: 065
     Dates: start: 20090716, end: 20161031

REACTIONS (3)
  - Malignant melanoma [Unknown]
  - Malignant melanoma [Unknown]
  - Malignant melanoma [Unknown]

NARRATIVE: CASE EVENT DATE: 20090827
